FAERS Safety Report 5951318-2 (Version None)
Quarter: 2008Q4

REPORT INFORMATION
  Report Type: 
  Country: None (occurrence: None)
  Receive Date: 20081022
  Receipt Date: 20080728
  Transmission Date: 20090506
  Serious: No
  Sender: FDA-Public Use
  Company Number: ALL1-2008-02061

PATIENT
  Age: 55 Year
  Sex: Female
  Weight: 52.2 kg

DRUGS (10)
  1. VYVANSE [Suspect]
     Indication: ATTENTION DEFICIT/HYPERACTIVITY DISORDER
     Dosage: 50 MG, 1X/DAY:QD, ORAL ; 70 MG, 1X/DAY:QD, ORAL
     Route: 048
     Dates: start: 20080501, end: 20080601
  2. VYVANSE [Suspect]
     Indication: ATTENTION DEFICIT/HYPERACTIVITY DISORDER
     Dosage: 50 MG, 1X/DAY:QD, ORAL ; 70 MG, 1X/DAY:QD, ORAL
     Route: 048
     Dates: start: 20080601, end: 20080701
  3. TRIAMTERENE AND HYDROCHLOROTHIAZIDE (HYDROCHLOROTHIAZIDE, TRIAMTERENE) [Concomitant]
  4. VYTORIN [Concomitant]
  5. PROZAC /00724401/ (FLUOXETINE) [Concomitant]
  6. THYROID TAB [Concomitant]
  7. PREVACID [Concomitant]
  8. CALCITROL /00508501/ (CALCIUM CARBONATE, ERGOCALCIFEROL, RETINOL) [Concomitant]
  9. CALCIUM (CALCIUM) [Concomitant]
  10. VITAMINS NOS (VITAMINS NOS) [Concomitant]

REACTIONS (5)
  - CONSTIPATION [None]
  - DIARRHOEA [None]
  - FLATULENCE [None]
  - OEDEMA PERIPHERAL [None]
  - WEIGHT INCREASED [None]
